FAERS Safety Report 7252565-2 (Version None)
Quarter: 2011Q1

REPORT INFORMATION
  Report Type: 
  Country: None (occurrence: None)
  Receive Date: 20110129
  Receipt Date: 20100126
  Transmission Date: 20110831
  Serious: No
  Sender: FDA-Public Use
  Company Number: US-ABBOTT-10P-163-0619981-00

PATIENT
  Age: 9 Year
  Sex: Male

DRUGS (2)
  1. HUMIRA [Suspect]
     Indication: CROHN'S DISEASE
     Route: 058
     Dates: start: 20090901, end: 20091001
  2. HUMIRA [Suspect]
     Route: 058
     Dates: start: 20091001

REACTIONS (3)
  - EAR PAIN [None]
  - DRUG EFFECT DECREASED [None]
  - HEARING IMPAIRED [None]
